FAERS Safety Report 16994671 (Version 1)
Quarter: 2019Q4

REPORT INFORMATION
  Report Type: Other
  Country: CA (occurrence: CA)
  Receive Date: 20191105
  Receipt Date: 20191105
  Transmission Date: 20200122
  Serious: Yes (Life-Threatening, Hospitalization, Other)
  Sender: FDA-Public Use
  Company Number: CA-PFIZER INC-2019466733

PATIENT
  Age: 58 Year
  Sex: Male

DRUGS (5)
  1. CARBAMAZEPINE. [Suspect]
     Active Substance: CARBAMAZEPINE
     Dosage: UNK
     Route: 048
  2. ALCOHOL. [Suspect]
     Active Substance: ALCOHOL
     Dosage: UNK
     Route: 065
  3. LORAZEPAM. [Suspect]
     Active Substance: LORAZEPAM
     Dosage: 60 MG, UNK
     Route: 048
  4. APO-CARBAMAZEPINE [Suspect]
     Active Substance: CARBAMAZEPINE
     Dosage: 14 G, UNK
     Route: 048
  5. APO-LORAZEPAM [Suspect]
     Active Substance: LORAZEPAM
     Dosage: 60 MG, UNK
     Route: 048

REACTIONS (6)
  - Overdose [Unknown]
  - Toxicity to various agents [Unknown]
  - Stupor [Unknown]
  - Ileus [Unknown]
  - Thrombocytopenia [Unknown]
  - Seizure [Unknown]
